FAERS Safety Report 7070096-X (Version None)
Quarter: 2010Q4

REPORT INFORMATION
  Report Type: 
  Country: None (occurrence: None)
  Receive Date: 20101028
  Receipt Date: 20100820
  Transmission Date: 20110411
  Serious: No
  Sender: FDA-Public Use
  Company Number: US-WYE-H17106210

PATIENT
  Sex: Male
  Weight: 90.8 kg

DRUGS (4)
  1. EFFEXOR [Suspect]
     Indication: DEPRESSION
     Dates: start: 20081101, end: 20091001
  2. PRISTIQ [Concomitant]
     Indication: DEPRESSION
     Dosage: UNSPECIFIED
     Dates: start: 20091001, end: 20090101
  3. RISPERDAL [Concomitant]
  4. EFFEXOR XR [Suspect]
     Indication: DEPRESSION
     Dosage: SLOWLY TAPERED OFF OVER A 100 DAY PERIOD
     Dates: start: 20090101, end: 20100201

REACTIONS (18)
  - AGITATION [None]
  - ANXIETY [None]
  - DECREASED APPETITE [None]
  - DRUG EFFECT DECREASED [None]
  - DRUG WITHDRAWAL SYNDROME [None]
  - DYSPNOEA [None]
  - EPIDIDYMITIS [None]
  - FATIGUE [None]
  - FOOD INTERACTION [None]
  - HEADACHE [None]
  - HEART RATE INCREASED [None]
  - INJURY [None]
  - INSOMNIA [None]
  - IRRITABILITY [None]
  - MENTAL DISORDER [None]
  - PROSTATE INFECTION [None]
  - SEXUAL DYSFUNCTION [None]
  - TREMOR [None]
